FAERS Safety Report 17912485 (Version 5)
Quarter: 2022Q4

REPORT INFORMATION
  Report Type: Spontaneous
  Country: US (occurrence: US)
  Receive Date: 20200618
  Receipt Date: 20221007
  Transmission Date: 20230112
  Serious: No
  Sender: FDA-Public Use
  Company Number: US-PFIZER INC-2020237012

PATIENT
  Age: 69 Year
  Sex: Female

DRUGS (3)
  1. IBRANCE [Suspect]
     Active Substance: PALBOCICLIB
     Dosage: UNK [IBRANCE TAB 75MG]
     Dates: start: 20170223
  2. IBRANCE [Suspect]
     Active Substance: PALBOCICLIB
     Dosage: 75 MG, CYCLIC
     Dates: start: 20180718
  3. IBRANCE [Suspect]
     Active Substance: PALBOCICLIB
     Dosage: 75 MG
     Dates: start: 20200409

REACTIONS (8)
  - Headache [Not Recovered/Not Resolved]
  - Pain [Unknown]
  - Pruritus [Unknown]
  - Dyspnoea [Unknown]
  - Flatulence [Unknown]
  - Depressed mood [Unknown]
  - Dysuria [Unknown]
  - Pollakiuria [Unknown]
